FAERS Safety Report 14267624 (Version 1)
Quarter: 2017Q4

REPORT INFORMATION
  Report Type: Spontaneous
  Country: US (occurrence: US)
  Receive Date: 20171210
  Receipt Date: 20171210
  Transmission Date: 20180321
  Serious: No
  Sender: FDA-Public Use
  Company Number: None

PATIENT
  Age: 58 Year
  Sex: Female
  Weight: 58.5 kg

DRUGS (2)
  1. PROBIOTICS [Concomitant]
     Active Substance: PROBIOTICS NOS
  2. TOPCARE MICONAZOLE 7 [Suspect]
     Active Substance: MICONAZOLE NITRATE
     Indication: VULVOVAGINAL MYCOTIC INFECTION
     Dosage: QUANTITY:1 SUPPOSITORY(IES);AT BEDTIME?
     Route: 067
     Dates: start: 20171207, end: 20171208

REACTIONS (4)
  - Reaction to excipient [None]
  - Suspected product contamination [None]
  - Vaginal discharge [None]
  - Product substitution issue [None]

NARRATIVE: CASE EVENT DATE: 20171208
